FAERS Safety Report 15951591 (Version 3)
Quarter: 2020Q1

REPORT INFORMATION
  Report Type: Spontaneous
  Country: US (occurrence: US)
  Receive Date: 20190211
  Receipt Date: 20200123
  Transmission Date: 20200409
  Serious: Yes (Disabling, Other)
  Sender: FDA-Public Use
  Company Number: US-ASTRAZENECA-2019SE09976

PATIENT
  Age: 59 Year
  Sex: Female
  Weight: 97.5 kg

DRUGS (14)
  1. NEXIUM [Suspect]
     Active Substance: ESOMEPRAZOLE MAGNESIUM
     Route: 048
     Dates: start: 20150101
  2. CLINDAMYCIN HCL [Concomitant]
     Active Substance: CLINDAMYCIN HYDROCHLORIDE
  3. PREDNISONE. [Concomitant]
     Active Substance: PREDNISONE
  4. INSULIN [Concomitant]
     Active Substance: INSULIN NOS
  5. LYRICA [Concomitant]
     Active Substance: PREGABALIN
  6. NAPROXEN. [Concomitant]
     Active Substance: NAPROXEN
  7. LIPITOR [Concomitant]
     Active Substance: ATORVASTATIN CALCIUM
  8. HUMULIN NOS [Concomitant]
     Active Substance: INSULIN HUMAN
  9. NEXIUM [Suspect]
     Active Substance: ESOMEPRAZOLE MAGNESIUM
     Route: 048
     Dates: start: 20101108
  10. TEMAZEPAM. [Concomitant]
     Active Substance: TEMAZEPAM
  11. CARVEDILOL. [Concomitant]
     Active Substance: CARVEDILOL
  12. AZASITE [Concomitant]
     Active Substance: AZITHROMYCIN MONOHYDRATE
  13. FLUCONAZOLE. [Concomitant]
     Active Substance: FLUCONAZOLE
  14. HYDROCODONE [Concomitant]
     Active Substance: HYDROCODONE

REACTIONS (5)
  - Renal failure [Unknown]
  - Chronic kidney disease [Not Recovered/Not Resolved]
  - Rebound acid hypersecretion [Unknown]
  - Renal injury [Unknown]
  - Acute kidney injury [Recovering/Resolving]

NARRATIVE: CASE EVENT DATE: 2015
